FAERS Safety Report 6422722-3 (Version None)
Quarter: 2009Q4

REPORT INFORMATION
  Report Type: 
  Country: None (occurrence: None)
  Receive Date: 20091102
  Receipt Date: 20091023
  Transmission Date: 20100525
  Serious: Yes (Other)
  Sender: FDA-Public Use
  Company Number: JP-JNJFOC-20091007968

PATIENT
  Age: 4 Decade
  Sex: Female

DRUGS (4)
  1. RISPERDAL [Suspect]
     Indication: SCHIZOPHRENIA
     Route: 048
  2. RISPERDAL CONSTA [Suspect]
     Indication: SCHIZOPHRENIA
     Route: 030
  3. LONASEN [Concomitant]
     Indication: SCHIZOPHRENIA
     Route: 048
  4. ROHYPNOL [Concomitant]
     Indication: INSOMNIA
     Route: 048

REACTIONS (4)
  - INCONTINENCE [None]
  - MUSCLE SPASMS [None]
  - POLYDIPSIA [None]
  - WATER INTOXICATION [None]
